FAERS Safety Report 24086194 (Version 1)
Quarter: 2024Q3

REPORT INFORMATION
  Report Type: Other
  Country: US (occurrence: US)
  Receive Date: 20240712
  Receipt Date: 20240712
  Transmission Date: 20241017
  Serious: Yes (Hospitalization, Other)
  Sender: UROVANT SCIENCES
  Company Number: US-UROVANT SCIENCES GMBH-202407-URV-001010

PATIENT
  Sex: Female

DRUGS (1)
  1. GEMTESA [Suspect]
     Active Substance: VIBEGRON
     Indication: Product used for unknown indication
     Dosage: UNK, QOD
     Route: 065

REACTIONS (3)
  - Seizure [Unknown]
  - Unresponsive to stimuli [Unknown]
  - Inappropriate schedule of product administration [Unknown]
